FAERS Safety Report 19194091 (Version 3)
Quarter: 2021Q2

REPORT INFORMATION
  Report Type: Spontaneous
  Country: US (occurrence: US)
  Receive Date: 20210429
  Receipt Date: 20210625
  Transmission Date: 20210717
  Serious: No
  Sender: FDA-Public Use
  Company Number: US-PFIZER INC-2021338646

PATIENT
  Age: 56 Year
  Sex: Male
  Weight: 88.45 kg

DRUGS (1)
  1. SOMAVERT [Suspect]
     Active Substance: PEGVISOMANT
     Indication: ACROMEGALY
     Dosage: 30 MG, ALTERNATE DAY (EVERY OTHER DAY)
     Dates: start: 201809

REACTIONS (3)
  - Off label use [Unknown]
  - Device delivery system issue [Unknown]
  - Device use issue [Unknown]
